FAERS Safety Report 7437551-1 (Version None)
Quarter: 2011Q2

REPORT INFORMATION
  Report Type: 
  Country: None (occurrence: None)
  Receive Date: 20110426
  Receipt Date: 20110414
  Transmission Date: 20111010
  Serious: Yes (Other)
  Sender: FDA-Public Use
  Company Number: US-SANOFI-AVENTIS-2011SA024090

PATIENT
  Sex: Female

DRUGS (3)
  1. LIPITOR [Suspect]
     Route: 048
  2. LIPITOR [Suspect]
     Route: 048
  3. PLAVIX [Suspect]
     Route: 065

REACTIONS (2)
  - VISUAL IMPAIRMENT [None]
  - CORONARY ARTERY OCCLUSION [None]
